FAERS Safety Report 17229137 (Version 1)
Quarter: 2020Q1

REPORT INFORMATION
  Report Type: Spontaneous
  Country: US (occurrence: US)
  Receive Date: 20200103
  Receipt Date: 20200103
  Transmission Date: 20200409
  Serious: Yes (Other)
  Sender: FDA-Public Use
  Company Number: US-BAYER-2020-000194

PATIENT
  Sex: Female
  Weight: 87.98 kg

DRUGS (7)
  1. ELIQUIS [Suspect]
     Active Substance: APIXABAN
  2. SYNTHROID [Suspect]
     Active Substance: LEVOTHYROXINE SODIUM
     Indication: DIABETIC NEUROPATHY
     Dosage: 75 MG, BID
     Route: 048
  3. SINGULAIR [Suspect]
     Active Substance: MONTELUKAST SODIUM
     Dosage: UNK
  4. SYMBICORT [Suspect]
     Active Substance: BUDESONIDE\FORMOTEROL FUMARATE DIHYDRATE
  5. LORATADINE. [Suspect]
     Active Substance: LORATADINE
     Dosage: UNK
  6. LYRICA [Suspect]
     Active Substance: PREGABALIN
     Indication: DIABETIC NEUROPATHY
     Dosage: 75 MG, BID
  7. PROTONIX [OMEPRAZOLE] [Concomitant]
     Active Substance: OMEPRAZOLE
     Indication: CHRONIC GASTRITIS
     Dosage: UNK

REACTIONS (7)
  - Hypertension [Unknown]
  - Coronary artery occlusion [Unknown]
  - Asthma [Unknown]
  - Gastric disorder [Unknown]
  - Cardiovascular disorder [Unknown]
  - Diabetic neuropathy [Unknown]
  - Single functional kidney [Unknown]
